FAERS Safety Report 6619824-5 (Version None)
Quarter: 2010Q1

REPORT INFORMATION
  Report Type: 
  Country: None (occurrence: None)
  Receive Date: 20100309
  Receipt Date: 20100305
  Transmission Date: 20100710
  Serious: Yes (Other)
  Sender: FDA-Public Use
  Company Number: PHEH2008US11739

PATIENT
  Sex: Female
  Weight: 53.4 kg

DRUGS (23)
  1. FEMARA [Suspect]
     Indication: ENDOMETRIAL SARCOMA
     Dosage: 2.5 MG, QD INTERMITTENT
     Route: 048
     Dates: start: 20010701
  2. OXYCODONE HCL [Suspect]
  3. HYDROCODONE [Suspect]
  4. DILAUDID [Suspect]
  5. ULTRAM [Suspect]
  6. ELAVIL [Suspect]
  7. LEVO-DROMORAN [Suspect]
  8. MEGACE [Suspect]
  9. PRILOSEC [Concomitant]
     Dosage: 20 MG, QD
     Route: 048
  10. ATENOLOL [Concomitant]
     Dosage: 25 MG, QD
     Route: 048
  11. NORVASC [Concomitant]
     Dosage: 5 MG, QD
     Route: 048
  12. XANAX [Concomitant]
     Dosage: 0.25MG TO 0.5 MG AS NEEDED
  13. CALCIUM [Concomitant]
     Dosage: 1500 MG, QD
     Route: 048
  14. MAGNESIUM [Concomitant]
     Dosage: 800 MG, QD
     Route: 048
  15. VITAMIN B6 [Concomitant]
     Dosage: 50 MG, QD
     Route: 048
  16. VITAMIN B-12 [Concomitant]
     Dosage: 250 MCG DAILY
     Route: 048
  17. FOLIC ACID [Concomitant]
     Dosage: 800 MG, QD
     Route: 048
  18. ZINC [Concomitant]
     Dosage: 50 MG, QD
     Route: 048
  19. FLAXSEED OIL [Concomitant]
     Dosage: 1 TBSP DAILY
     Route: 048
  20. ACIDOPHILUS ^ZYMA^ [Concomitant]
     Dosage: 1 ORAL DAILY
  21. L-GLUTAMINE                             /USA/ [Concomitant]
     Dosage: 500 MG, PRN
     Route: 048
  22. VITAMIN C [Concomitant]
     Dosage: 500 MG, QD
     Route: 048
  23. LOMOTIL [Concomitant]
     Dosage: 2 TABS AS NEEDED
     Route: 048

REACTIONS (14)
  - ARTHRALGIA [None]
  - BACK PAIN [None]
  - BREATH SOUNDS ABNORMAL [None]
  - BRONCHITIS [None]
  - DRUG INTOLERANCE [None]
  - HALLUCINATION [None]
  - INFLAMMATION [None]
  - LUNG INFECTION [None]
  - MYALGIA [None]
  - NECK PAIN [None]
  - PAIN [None]
  - PAIN IN EXTREMITY [None]
  - PLEURAL EFFUSION [None]
  - PULMONARY OEDEMA [None]
